FAERS Safety Report 5179060-9 (Version None)
Quarter: 2006Q4

REPORT INFORMATION
  Report Type: 
  Country: None (occurrence: None)
  Receive Date: 20061219
  Receipt Date: 20061204
  Transmission Date: 20070319
  Serious: Yes (Hospitalization, Other)
  Sender: FDA-Public Use
  Company Number: BR-JNJFOC-20061002703

PATIENT
  Age: 32 Year
  Sex: Female
  Weight: 61 kg

DRUGS (3)
  1. ORTHO EVRA [Suspect]
     Indication: MENSTRUATION IRREGULAR
  2. EUTHYROX [Concomitant]
     Indication: HYPOTHYROIDISM
  3. SERTRALINE [Concomitant]
     Indication: DEPRESSION

REACTIONS (2)
  - DEEP VEIN THROMBOSIS [None]
  - HEPATOMEGALY [None]
